FAERS Safety Report 9931336 (Version 1)
Quarter: 2014Q1

REPORT INFORMATION
  Report Type: Report from Study
  Country: DE (occurrence: DE)
  Receive Date: 20140228
  Receipt Date: 20140228
  Transmission Date: 20141002
  Serious: Yes (Hospitalization)
  Sender: FDA-Public Use
  Company Number: DE-ROCHE-1355607

PATIENT
  Age: 73 Year
  Sex: Male

DRUGS (9)
  1. RITUXIMAB [Suspect]
     Indication: RHEUMATOID ARTHRITIS
     Route: 065
     Dates: start: 20070726, end: 20120130
  2. RITUXIMAB [Suspect]
     Route: 065
     Dates: start: 20080110
  3. RITUXIMAB [Suspect]
     Route: 065
     Dates: start: 20080703
  4. RITUXIMAB [Suspect]
     Route: 065
     Dates: start: 20090110
  5. RITUXIMAB [Suspect]
     Route: 065
     Dates: start: 20100222
  6. RITUXIMAB [Suspect]
     Route: 065
     Dates: start: 20101202
  7. RITUXIMAB [Suspect]
     Route: 065
     Dates: start: 20110711
  8. RITUXIMAB [Suspect]
     Route: 065
     Dates: start: 20120130
  9. LEFLUNOMID [Concomitant]
     Dosage: ALSO ON 24/JAN/2008, 17/JUL/2008
     Route: 065
     Dates: start: 20071129, end: 20090113

REACTIONS (1)
  - Cerebrovascular accident [Unknown]
